FAERS Safety Report 4844786-0 (Version None)
Quarter: 2005Q4

REPORT INFORMATION
  Report Type: 
  Country: None (occurrence: None)
  Receive Date: 20051205
  Receipt Date: 20051130
  Transmission Date: 20060501
  Serious: Yes (Hospitalization)
  Sender: FDA-Public Use
  Company Number: US-BRISTOL-MYERS SQUIBB COMPANY-13200308

PATIENT
  Age: 50 Year
  Sex: Female
  Weight: 52 kg

DRUGS (3)
  1. CETUXIMAB [Suspect]
     Indication: SQUAMOUS CELL CARCINOMA
     Dosage: 400 MG/M2 ADMINISTERED ON 28-OCT-2005.  TOTAL DOSE ADMINISTERED THIS COURSE = 1840 MG.
     Route: 042
     Dates: start: 20051116, end: 20051116
  2. CISPLATIN [Suspect]
     Indication: SQUAMOUS CELL CARCINOMA
     Dosage: INITIATED ON 28-OCT-2005.  TOTAL DOSE ADMINISTERED THIS COURSE = 144 MG.
     Route: 042
     Dates: start: 20051116, end: 20051116
  3. RADIATION THERAPY [Suspect]
     Indication: SQUAMOUS CELL CARCINOMA
     Dosage: INITIATED 28-OCT-2005/60 GY; 2 GY/FX/EXTERNAL BEAM TOTAL DOSE 30 GY TO DATE.
     Dates: start: 20051122, end: 20051122

REACTIONS (1)
  - DEHYDRATION [None]
